FAERS Safety Report 4985850-5 (Version None)
Quarter: 2006Q2

REPORT INFORMATION
  Report Type: 
  Country: None (occurrence: None)
  Receive Date: 20060428
  Receipt Date: 20050725
  Transmission Date: 20061013
  Serious: No
  Sender: FDA-Public Use
  Company Number: US-GLAXOSMITHKLINE-A0567529A

PATIENT
  Age: 28 Year
  Sex: Female

DRUGS (4)
  1. ZOFRAN [Suspect]
     Indication: PROPHYLAXIS OF NAUSEA AND VOMITING
     Dosage: 4MG THREE TIMES PER DAY
     Route: 048
  2. TYLENOL (CAPLET) [Concomitant]
  3. GLYCERIN SUPPOSITORIES [Concomitant]
  4. PRENATAL VITAMINS [Concomitant]

REACTIONS (9)
  - AGITATION [None]
  - CONSTIPATION [None]
  - DRUG EXPOSURE DURING PREGNANCY [None]
  - DRUG INEFFECTIVE [None]
  - GASTROINTESTINAL PAIN [None]
  - HEADACHE [None]
  - NAUSEA [None]
  - TREMOR [None]
  - VOMITING [None]
